FAERS Safety Report 7446431-7 (Version None)
Quarter: 2011Q2

REPORT INFORMATION
  Report Type: 
  Country: None (occurrence: None)
  Receive Date: 20110429
  Receipt Date: 20100712
  Transmission Date: 20111010
  Serious: No
  Sender: FDA-Public Use
  Company Number: US-ASTRAZENECA-2010SE32427

PATIENT
  Age: 65 Year
  Sex: Female

DRUGS (2)
  1. CORTISONE [Suspect]
     Route: 065
  2. NEXIUM [Suspect]
     Route: 048
     Dates: start: 20050101

REACTIONS (1)
  - CANDIDIASIS [None]
